FAERS Safety Report 23175742 (Version 2)
Quarter: 2023Q4

REPORT INFORMATION
  Report Type: Spontaneous
  Country: CH (occurrence: CH)
  Receive Date: 20231113
  Receipt Date: 20231117
  Transmission Date: 20240109
  Serious: Yes (Hospitalization)
  Sender: FDA-Public Use
  Company Number: CH-ARBOR PHARMACEUTICALS, LLC-CH-2023ARB004887

PATIENT
  Age: 74 Year
  Sex: Male

DRUGS (2)
  1. AZILSARTAN KAMEDOXOMIL [Suspect]
     Active Substance: AZILSARTAN KAMEDOXOMIL
     Indication: Hypertension
     Dosage: UNK
     Route: 065
  2. AZILSARTAN KAMEDOXOMIL [Suspect]
     Active Substance: AZILSARTAN KAMEDOXOMIL
     Dosage: UNK
     Route: 065

REACTIONS (2)
  - Sprue-like enteropathy [Recovering/Resolving]
  - Hypotension [Recovered/Resolved]
